FAERS Safety Report 8314080-4 (Version None)
Quarter: 2012Q2

REPORT INFORMATION
  Report Type: 
  Country: None (occurrence: None)
  Receive Date: 20120426
  Receipt Date: 20120423
  Transmission Date: 20120825
  Serious: Yes (Hospitalization)
  Sender: FDA-Public Use
  Company Number: US-GILEAD-2012-0052703

PATIENT
  Sex: Female

DRUGS (3)
  1. NORVASC [Concomitant]
  2. AMIODARONE HCL [Concomitant]
  3. LETAIRIS [Suspect]
     Indication: PULMONARY HYPERTENSION
     Dosage: 10 MG, UNK
     Route: 048
     Dates: start: 20100111

REACTIONS (1)
  - VENTRICULAR EXTRASYSTOLES [None]
